FAERS Safety Report 8240840-4 (Version None)
Quarter: 2012Q1

REPORT INFORMATION
  Report Type: 
  Country: None (occurrence: None)
  Receive Date: 20120328
  Receipt Date: 20120327
  Transmission Date: 20120608
  Serious: Yes (Hospitalization, Other)
  Sender: FDA-Public Use
  Company Number: PHHY2012FR019800

PATIENT
  Sex: Male

DRUGS (7)
  1. GAVISCON [Suspect]
     Route: 048
     Dates: end: 20120114
  2. LESCOL [Suspect]
     Route: 048
     Dates: end: 20120114
  3. AMLODIPINE BESYLATE AND OLMESARTAN MEDOXOMIL [Suspect]
     Route: 048
     Dates: end: 20120114
  4. VENTOLIN [Suspect]
     Indication: DYSPNOEA
     Dates: end: 20120114
  5. PANTOPRAZOLE SODIUM [Suspect]
     Dosage: 2 DF
     Route: 048
     Dates: end: 20120114
  6. BACTRIM [Suspect]
     Indication: PNEUMOCYSTIS JIROVECI PNEUMONIA
     Dates: start: 20120114, end: 20120116
  7. AMLODIPINE [Concomitant]
     Route: 048

REACTIONS (8)
  - RENAL FAILURE ACUTE [None]
  - DYSPNOEA [None]
  - ACUTE RESPIRATORY DISTRESS SYNDROME [None]
  - COUGH [None]
  - THROMBOCYTOPENIA [None]
  - EOSINOPHILIC PNEUMONIA [None]
  - RESPIRATORY FAILURE [None]
  - HYPOXIA [None]
